FAERS Safety Report 11777486 (Version 1)
Quarter: 2015Q4

REPORT INFORMATION
  Report Type: Report from Study
  Country: FR (occurrence: FR)
  Receive Date: 20151125
  Receipt Date: 20151125
  Transmission Date: 20160304
  Serious: Yes (Other)
  Sender: FDA-Public Use
  Company Number: FR-GILEAD-2015-0184297

PATIENT
  Age: 79 Year
  Sex: Female

DRUGS (2)
  1. IDELALISIB [Suspect]
     Active Substance: IDELALISIB
     Indication: B-CELL LYMPHOMA
     Route: 065
  2. RITUXIMAB [Concomitant]
     Active Substance: RITUXIMAB
     Indication: B-CELL LYMPHOMA

REACTIONS (1)
  - Disease progression [Unknown]

NARRATIVE: CASE EVENT DATE: 20151120
